FAERS Safety Report 6050687-5 (Version None)
Quarter: 2009Q1

REPORT INFORMATION
  Report Type: 
  Country: None (occurrence: None)
  Receive Date: 20090121
  Receipt Date: 20090121
  Transmission Date: 20090719
  Serious: Yes (Hospitalization)
  Sender: FDA-Public Use
  Company Number: None

PATIENT
  Age: 20 Year
  Sex: Female
  Weight: 113.3993 kg

DRUGS (2)
  1. GEODON [Suspect]
     Indication: AFFECTIVE DISORDER
     Dosage: 40 MG 1/DAY PO
     Route: 048
     Dates: start: 20081028, end: 20081113
  2. GEODON [Suspect]
     Indication: ANXIETY
     Dosage: 40 MG 1/DAY PO
     Route: 048
     Dates: start: 20081028, end: 20081113

REACTIONS (2)
  - DYSTONIA [None]
  - FEAR OF DISEASE [None]
